FAERS Safety Report 5929473-X (Version None)
Quarter: 2008Q3

REPORT INFORMATION
  Report Type: 
  Country: None (occurrence: None)
  Receive Date: 20080924
  Receipt Date: 20080623
  Transmission Date: 20090109
  Serious: Yes (Other)
  Sender: FDA-Public Use
  Company Number: A03200801380

PATIENT
  Age: 65 Year
  Sex: Female
  Weight: 79.3795 kg

DRUGS (12)
  1. AMBIEN CR [Suspect]
     Indication: SLEEP APNOEA SYNDROME
     Dosage: 12.5 MG ONCE - ORAL
     Route: 048
     Dates: start: 20070711, end: 20070711
  2. METOPROLOL TARTRATE [Concomitant]
  3. SIMVASTATIN [Concomitant]
  4. FAMOTIDINE [Concomitant]
  5. IBUPROFEN TABLETS [Concomitant]
  6. LATANOPROST [Concomitant]
  7. PREGABALIN [Concomitant]
  8. RABEPRAZOLE SODIUM [Concomitant]
  9. ZINC [Concomitant]
  10. VITAMIN B COMPLEX CAP [Concomitant]
  11. VITAMIN B6 [Concomitant]
  12. MULTI-VITAMINS [Concomitant]

REACTIONS (9)
  - AMNESIA [None]
  - CONTUSION [None]
  - DRUG INEFFECTIVE [None]
  - DYSPNOEA [None]
  - FALL [None]
  - GASTROOESOPHAGEAL REFLUX DISEASE [None]
  - MYALGIA [None]
  - SOMNOLENCE [None]
  - SYNCOPE [None]
